FAERS Safety Report 4622463-9 (Version None)
Quarter: 2005Q1

REPORT INFORMATION
  Report Type: 
  Country: None (occurrence: None)
  Receive Date: 20050330
  Receipt Date: 20050324
  Transmission Date: 20050727
  Serious: Yes (Death)
  Sender: FDA-Public Use
  Company Number: 200510902JP

PATIENT
  Age: 57 Year
  Sex: Male

DRUGS (9)
  1. LASIX [Suspect]
     Indication: ASCITES
     Route: 048
     Dates: start: 20020207, end: 20021116
  2. AMLODIN [Suspect]
     Indication: HYPERTENSION
     Route: 048
     Dates: start: 20020215, end: 20020301
  3. MUCOSTA [Suspect]
     Dates: start: 20020215, end: 20020301
  4. ALDACTONE [Concomitant]
     Indication: ASCITES
     Dates: start: 20020215, end: 20020715
  5. ACINON [Concomitant]
     Route: 048
  6. PROMAC                                  /JPN/ [Concomitant]
     Route: 048
  7. URSO 250 [Concomitant]
     Route: 048
     Dates: start: 20020219
  8. LIVACT [Concomitant]
     Route: 048
     Dates: start: 20020219
  9. BUMINATE [Concomitant]
     Indication: ASCITES
     Route: 041
     Dates: start: 20020219, end: 20020301

REACTIONS (6)
  - BLISTER [None]
  - DRUG ERUPTION [None]
  - HEPATIC FAILURE [None]
  - RASH ERYTHEMATOUS [None]
  - RASH MACULO-PAPULAR [None]
  - SKIN ULCER [None]
